FAERS Safety Report 20882023 (Version 1)
Quarter: 2022Q2

REPORT INFORMATION
  Report Type: Spontaneous
  Country: JP (occurrence: JP)
  Receive Date: 20220527
  Receipt Date: 20220527
  Transmission Date: 20220721
  Serious: Yes (Disabling)
  Sender: FDA-Public Use
  Company Number: JP-NOVOPROD-920134

PATIENT
  Age: 81 Year
  Sex: Female

DRUGS (2)
  1. TRESIBA [Suspect]
     Active Substance: INSULIN DEGLUDEC
     Indication: Pancreatogenous diabetes
     Dosage: 3 IU, QD (0-0-3IU/DAY)
     Route: 058
  2. INSULIN GLULISINE RECOMBINANT [Suspect]
     Active Substance: INSULIN GLULISINE
     Indication: Pancreatogenous diabetes
     Dosage: 15 IU, QD (6-6-3IU/DAY)
     Route: 058

REACTIONS (2)
  - Hypoglycaemic coma [Recovered/Resolved with Sequelae]
  - Hypoglycaemic encephalopathy [Recovered/Resolved with Sequelae]
